FAERS Safety Report 6678913-X (Version None)
Quarter: 2010Q2

REPORT INFORMATION
  Report Type: 
  Country: None (occurrence: None)
  Receive Date: 20100412
  Receipt Date: 20100412
  Transmission Date: 20101027
  Serious: Yes (Other)
  Sender: FDA-Public Use
  Company Number: None

PATIENT
  Age: 26 Year
  Sex: Male
  Weight: 70.3075 kg

DRUGS (1)
  1. OFLOXACIN [Suspect]
     Indication: URINARY TRACT INFECTION
     Dosage: 300MG TWICE A DAY BUCCAL
     Route: 002
     Dates: start: 20100408, end: 20100408

REACTIONS (6)
  - ABASIA [None]
  - CHEST PAIN [None]
  - CONFUSIONAL STATE [None]
  - HYPERSENSITIVITY [None]
  - MUSCULOSKELETAL STIFFNESS [None]
  - MYALGIA [None]
